FAERS Safety Report 9639881 (Version 1)
Quarter: 2013Q4

REPORT INFORMATION
  Report Type: Spontaneous
  Country: US (occurrence: None)
  Receive Date: 20131021
  Receipt Date: 20131021
  Transmission Date: 20140711
  Serious: No
  Sender: FDA-Public Use
  Company Number: None

PATIENT
  Age: 49 Year
  Sex: Female
  Weight: 56.7 kg

DRUGS (1)
  1. MONTELUKAST SODIUM [Suspect]
     Indication: ASTHMA
     Dosage: 1 PILL/TV 7426 ONCE DAILY TAKEN BY MOUTH
     Dates: start: 20131009, end: 20131018

REACTIONS (5)
  - Headache [None]
  - Migraine [None]
  - Muscle tightness [None]
  - Fatigue [None]
  - Myalgia [None]
